FAERS Safety Report 6115601-2 (Version None)
Quarter: 2009Q1

REPORT INFORMATION
  Report Type: 
  Country: None (occurrence: None)
  Receive Date: 20090313
  Receipt Date: 20090227
  Transmission Date: 20090719
  Serious: Yes (Other)
  Sender: FDA-Public Use
  Company Number: GR-GENENTECH-277735

PATIENT
  Age: 75 Year
  Sex: Male

DRUGS (1)
  1. AVASTIN [Suspect]
     Indication: MACULAR DEGENERATION
     Dosage: 0.1 ML, UNK
     Route: 031
     Dates: start: 20081124, end: 20081124

REACTIONS (3)
  - GLARE [None]
  - PHOTOPHOBIA [None]
  - SCLERAL HYPERAEMIA [None]
